FAERS Safety Report 8748149 (Version 2)
Quarter: 2012Q4

REPORT INFORMATION
  Report Type: 
  Country: US (occurrence: US)
  Receive Date: 20120827
  Receipt Date: 20120918
  Transmission Date: 20130627
  Serious: Yes (Other)
  Sender: FDA-Public Use
  Company Number: CHPA2012US018487

PATIENT
  Age: 54 Year
  Sex: Female

DRUGS (2)
  1. BENEFIBER W/ WHEAT DEXTRIN [Suspect]
     Indication: DIVERTICULITIS
     Dosage: 3 DF, QD
     Route: 048
     Dates: start: 2007
  2. BENEFIBER W/ WHEAT DEXTRIN [Suspect]
     Indication: DIVERTICULITIS
     Dosage: UNK, UNK
     Route: 048
     Dates: start: 2007

REACTIONS (4)
  - Diverticulitis [Recovered/Resolved]
  - Pain [Recovered/Resolved]
  - Off label use [Unknown]
  - Therapeutic response unexpected [Unknown]
